FAERS Safety Report 9505795 (Version 1)
Quarter: 2013Q1

REPORT INFORMATION
  Report Type: Spontaneous
  Country: US (occurrence: None)
  Receive Date: 20130220
  Receipt Date: 20130220
  Transmission Date: 20140127
  Serious: No
  Sender: FDA-Public Use
  Company Number: 1000040193

PATIENT
  Sex: Female

DRUGS (2)
  1. VIIBRYD [Suspect]
     Indication: DEPRESSION
     Route: 048
     Dates: start: 20121030, end: 20121105
  2. XANAX (ALPRAZOLAM) [Suspect]
     Indication: INSOMNIA
     Dates: end: 2012

REACTIONS (2)
  - Somnolence [None]
  - Feeling abnormal [None]
